FAERS Safety Report 7336163-8 (Version None)
Quarter: 2011Q1

REPORT INFORMATION
  Report Type: 
  Country: None (occurrence: None)
  Receive Date: 20110302
  Receipt Date: 20110302
  Transmission Date: 20110831
  Serious: Yes (Other)
  Sender: FDA-Public Use
  Company Number: None

PATIENT
  Sex: Male
  Weight: 20.7 kg

DRUGS (2)
  1. MULTI-VITAMIN [Concomitant]
  2. AMOXICILLIN AND CLAVULANATE POTASSIUM [Suspect]
     Indication: STREPTOCOCCAL INFECTION
     Dosage: 5 ML BID ORAL
     Route: 048
     Dates: start: 20110208, end: 20110216

REACTIONS (13)
  - APATHY [None]
  - EDUCATIONAL PROBLEM [None]
  - CRYING [None]
  - SLEEP DISORDER [None]
  - AFFECT LABILITY [None]
  - DECREASED APPETITE [None]
  - PERSONALITY CHANGE [None]
  - SOCIAL AVOIDANT BEHAVIOUR [None]
  - NERVOUS SYSTEM DISORDER [None]
  - DEPRESSION [None]
  - WEIGHT DECREASED [None]
  - DEHYDRATION [None]
  - DIET REFUSAL [None]
